FAERS Safety Report 21607507 (Version 1)
Quarter: 2022Q4

REPORT INFORMATION
  Report Type: Spontaneous
  Country: FR (occurrence: FR)
  Receive Date: 20221117
  Receipt Date: 20221117
  Transmission Date: 20230113
  Serious: Yes (Other)
  Sender: FDA-Public Use
  Company Number: FR-AFSSAPS-AVCN20220880

PATIENT
  Age: 34 Year
  Sex: Male

DRUGS (6)
  1. OLANZAPINE [Suspect]
     Active Substance: OLANZAPINE
     Indication: Product used for unknown indication
     Dosage: UNK (3 CP OLANZAPINE 5 MG)
     Route: 048
     Dates: start: 20221020, end: 20221020
  2. COCAINE [Suspect]
     Active Substance: COCAINE
     Indication: Product used for unknown indication
     Dosage: UNK (4 GRAMMES EN 6 HEURES)
     Route: 065
     Dates: start: 20221020, end: 20221020
  3. COCAINE [Suspect]
     Active Substance: COCAINE
     Route: 065
  4. ALCOHOL [Suspect]
     Active Substance: ALCOHOL
     Indication: Product used for unknown indication
     Dosage: UNK (NON RENSEIGN?E)
     Route: 048
  5. ALCOHOL [Suspect]
     Active Substance: ALCOHOL
     Dosage: UNK (1 BOUTEILLE DE ROS?)
     Route: 048
     Dates: start: 20221020, end: 20221020
  6. VALIUM [Suspect]
     Active Substance: DIAZEPAM
     Indication: Product used for unknown indication
     Dosage: UNK (10 CP (DOSAGE NON RENSEIGN?)
     Route: 048
     Dates: start: 20221020, end: 20221020

REACTIONS (4)
  - Drug abuse [Not Recovered/Not Resolved]
  - Suicidal ideation [Recovered/Resolved]
  - Tachycardia [Recovered/Resolved]
  - Poisoning [Recovered/Resolved]

NARRATIVE: CASE EVENT DATE: 20221020
